FAERS Safety Report 4448899-7 (Version None)
Quarter: 2004Q3

REPORT INFORMATION
  Report Type: 
  Country: None (occurrence: None)
  Receive Date: 20040909
  Receipt Date: 20040825
  Transmission Date: 20050211
  Serious: Yes (Other)
  Sender: FDA-Public Use
  Company Number: DSA_80701_2004

PATIENT
  Age: 53 Year
  Sex: Female

DRUGS (3)
  1. XYREM [Suspect]
     Indication: FIBROMYALGIA
     Dosage: 5 G NIGHTLY PO
     Route: 048
     Dates: start: 20031110, end: 20031231
  2. XYREM [Suspect]
     Indication: INSOMNIA
     Dosage: 5 G NIGHTLY PO
     Route: 048
     Dates: start: 20031110, end: 20031231
  3. SERZONE [Concomitant]

REACTIONS (3)
  - CONDITION AGGRAVATED [None]
  - DEPRESSION [None]
  - WEIGHT DECREASED [None]
